FAERS Safety Report 15940372 (Version 5)
Quarter: 2020Q3

REPORT INFORMATION
  Report Type: Spontaneous
  Country: JP (occurrence: JP)
  Receive Date: 20190208
  Receipt Date: 20200825
  Transmission Date: 20201102
  Serious: Yes (Hospitalization, Other)
  Sender: FDA-Public Use
  Company Number: JP-BRISTOL-MYERS SQUIBB COMPANY-BMS-2018-095617

PATIENT
  Age: 60 Year
  Sex: Male
  Weight: 65.6 kg

DRUGS (40)
  1. OPDIVO [Suspect]
     Active Substance: NIVOLUMAB
     Dosage: 64 MILLIGRAM, ONE TIME DOSE
     Route: 041
     Dates: start: 20181024, end: 20181024
  2. OPDIVO [Suspect]
     Active Substance: NIVOLUMAB
     Dosage: 64 MILLIGRAM, ONE TIME DOSE
     Route: 041
     Dates: start: 20190305, end: 20190305
  3. OPDIVO [Suspect]
     Active Substance: NIVOLUMAB
     Dosage: 64 MILLIGRAM, ONE TIME DOSE
     Route: 041
     Dates: start: 20190402, end: 20190402
  4. OPDIVO [Suspect]
     Active Substance: NIVOLUMAB
     Dosage: 64 MILLIGRAM, ONE TIME DOSE
     Route: 041
     Dates: start: 20191106, end: 20191106
  5. CORTRIL [Suspect]
     Active Substance: HYDROCORTISONE
     Dosage: 30 MILLIGRAM
     Route: 048
     Dates: start: 20190101, end: 20190106
  6. CORTRIL [Suspect]
     Active Substance: HYDROCORTISONE
     Dosage: 20 MILLIGRAM
     Route: 048
     Dates: start: 20190106
  7. OPDIVO [Suspect]
     Active Substance: NIVOLUMAB
     Dosage: 64 MILLIGRAM, ONE TIME DOSE
     Route: 041
     Dates: start: 20190731, end: 20190731
  8. OPDIVO [Suspect]
     Active Substance: NIVOLUMAB
     Dosage: 64 MILLIGRAM, ONE TIME DOSE
     Route: 041
     Dates: start: 20191211, end: 20191211
  9. OPDIVO [Suspect]
     Active Substance: NIVOLUMAB
     Dosage: 64 MILLIGRAM, ONE TIME DOSE
     Route: 041
     Dates: start: 20191225, end: 20191225
  10. YERVOY [Suspect]
     Active Substance: IPILIMUMAB
     Dosage: 192 MILLIGRAM, ONE TIME DOSE
     Route: 041
     Dates: start: 20181003, end: 20181003
  11. CORTRIL [Suspect]
     Active Substance: HYDROCORTISONE
     Dosage: 40 MILLIGRAM
     Route: 048
     Dates: start: 20181126, end: 20181207
  12. OPDIVO [Suspect]
     Active Substance: NIVOLUMAB
     Dosage: 64 MILLIGRAM, ONE TIME DOSE
     Route: 041
     Dates: start: 20180912, end: 20180912
  13. CORTRIL [Suspect]
     Active Substance: HYDROCORTISONE
     Dosage: 20 MILLIGRAM
     Route: 048
     Dates: start: 20181207, end: 20181212
  14. CORTRIL [Suspect]
     Active Substance: HYDROCORTISONE
     Dosage: 40 MILLIGRAM
     Route: 048
     Dates: start: 20181212, end: 20190101
  15. OPDIVO [Suspect]
     Active Substance: NIVOLUMAB
     Dosage: 64 MILLIGRAM, ONE TIME DOSE
     Route: 041
     Dates: start: 20190416, end: 20190416
  16. OPDIVO [Suspect]
     Active Substance: NIVOLUMAB
     Dosage: 64 MILLIGRAM, ONE TIME DOSE
     Route: 041
     Dates: start: 20190619, end: 20190619
  17. OPDIVO [Suspect]
     Active Substance: NIVOLUMAB
     Dosage: 64 MILLIGRAM, ONE TIME DOSE
     Route: 041
     Dates: start: 20190925, end: 20190925
  18. CORTRIL [Suspect]
     Active Substance: HYDROCORTISONE
     Indication: PRODUCT USED FOR UNKNOWN INDICATION
     Dosage: 20 MILLIGRAM
     Route: 048
     Dates: start: 20181020, end: 20181126
  19. ACUATIM [Concomitant]
     Active Substance: NADIFLOXACIN
     Indication: PRODUCT USED FOR UNKNOWN INDICATION
     Dosage: UNK
     Route: 065
     Dates: start: 20190522
  20. OPDIVO [Suspect]
     Active Substance: NIVOLUMAB
     Dosage: 64 MILLIGRAM, ONE TIME DOSE
     Route: 041
     Dates: start: 20181114, end: 20181114
  21. OPDIVO [Suspect]
     Active Substance: NIVOLUMAB
     Dosage: 64 MILLIGRAM, ONE TIME DOSE
     Route: 041
     Dates: start: 20190717, end: 20190717
  22. OPDIVO [Suspect]
     Active Substance: NIVOLUMAB
     Dosage: 64 MILLIGRAM, ONE TIME DOSE
     Route: 041
     Dates: start: 20191009, end: 20191009
  23. ATARAX [Concomitant]
     Active Substance: HYDROXYZINE HYDROCHLORIDE
     Indication: PRODUCT USED FOR UNKNOWN INDICATION
     Dosage: 25 MILLIGRAM
     Route: 065
     Dates: start: 20190717
  24. OPDIVO [Suspect]
     Active Substance: NIVOLUMAB
     Dosage: 64 MILLIGRAM, ONE TIME DOSE
     Route: 041
     Dates: start: 20190605, end: 20190605
  25. OPDIVO [Suspect]
     Active Substance: NIVOLUMAB
     Dosage: 64 MILLIGRAM, ONE TIME DOSE
     Route: 041
     Dates: start: 20190814, end: 20190814
  26. OPDIVO [Suspect]
     Active Substance: NIVOLUMAB
     Dosage: 64 MILLIGRAM, ONE TIME DOSE
     Route: 041
     Dates: start: 20181128, end: 20181128
  27. OPDIVO [Suspect]
     Active Substance: NIVOLUMAB
     Dosage: 64 MILLIGRAM, ONE TIME DOSE
     Route: 041
     Dates: start: 20191023, end: 20191023
  28. OPDIVO [Suspect]
     Active Substance: NIVOLUMAB
     Dosage: 64 MILLIGRAM, ONE TIME DOSE
     Route: 041
     Dates: start: 20191127, end: 20191127
  29. OPDIVO [Suspect]
     Active Substance: NIVOLUMAB
     Dosage: 64 MILLIGRAM, ONE TIME DOSE
     Route: 041
     Dates: start: 20200108, end: 20200108
  30. OPDIVO [Suspect]
     Active Substance: NIVOLUMAB
     Dosage: 64 MILLIGRAM, ONE TIME DOSE
     Route: 041
     Dates: start: 20200122
  31. YERVOY [Suspect]
     Active Substance: IPILIMUMAB
     Dosage: 192 MILLIGRAM, ONE TIME DOSE
     Route: 041
     Dates: start: 20181024, end: 20181024
  32. OPDIVO [Suspect]
     Active Substance: NIVOLUMAB
     Indication: MALIGNANT MELANOMA
     Dosage: 64 MILLIGRAM, ONE TIME DOSE
     Route: 041
     Dates: start: 20180821, end: 20180821
  33. OPDIVO [Suspect]
     Active Substance: NIVOLUMAB
     Dosage: 64 MILLIGRAM, ONE TIME DOSE
     Route: 041
     Dates: start: 20181003, end: 20181003
  34. OPDIVO [Suspect]
     Active Substance: NIVOLUMAB
     Dosage: 64 MILLIGRAM, ONE TIME DOSE
     Route: 041
     Dates: start: 20190319, end: 20190319
  35. OPDIVO [Suspect]
     Active Substance: NIVOLUMAB
     Dosage: 64 MILLIGRAM, ONE TIME DOSE
     Route: 041
     Dates: start: 20190522, end: 20190522
  36. OPDIVO [Suspect]
     Active Substance: NIVOLUMAB
     Dosage: 64 MILLIGRAM, ONE TIME DOSE
     Route: 041
     Dates: start: 20190703, end: 20190703
  37. OPDIVO [Suspect]
     Active Substance: NIVOLUMAB
     Dosage: 64 MILLIGRAM, ONE TIME DOSE
     Route: 041
     Dates: start: 20190828, end: 20190828
  38. OPDIVO [Suspect]
     Active Substance: NIVOLUMAB
     Dosage: 64 MILLIGRAM, ONE TIME DOSE
     Route: 041
     Dates: start: 20190911, end: 20190911
  39. YERVOY [Suspect]
     Active Substance: IPILIMUMAB
     Indication: MALIGNANT MELANOMA
     Dosage: 192 MILLIGRAM, ONE TIME DOSE
     Route: 041
     Dates: start: 20180821, end: 20180821
  40. YERVOY [Suspect]
     Active Substance: IPILIMUMAB
     Dosage: 192 MILLIGRAM, ONE TIME DOSE
     Route: 041
     Dates: start: 20180912, end: 20180912

REACTIONS (20)
  - Cerebral ischaemia [Unknown]
  - Adrenocortical insufficiency acute [Unknown]
  - Astigmatism [Unknown]
  - Taste disorder [Recovered/Resolved]
  - Cellulitis [Unknown]
  - Depressed mood [Not Recovered/Not Resolved]
  - Hypophysitis [Recovering/Resolving]
  - Malaise [Unknown]
  - Hypopituitarism [Recovering/Resolving]
  - Mental disorder [Unknown]
  - Personality change [Recovering/Resolving]
  - Eyelid tumour [Unknown]
  - Blood thyroid stimulating hormone abnormal [Recovering/Resolving]
  - Decreased appetite [Recovering/Resolving]
  - Movement disorder [Recovering/Resolving]
  - Weight decreased [Unknown]
  - Blood corticotrophin decreased [Recovering/Resolving]
  - Hypothyroidism [Not Recovered/Not Resolved]
  - Muscular weakness [Unknown]
  - Hypermetropia [Unknown]

NARRATIVE: CASE EVENT DATE: 20180831
